FAERS Safety Report 24230951 (Version 2)
Quarter: 2024Q3

REPORT INFORMATION
  Report Type: Report from Study
  Country: US (occurrence: US)
  Receive Date: 20240821
  Receipt Date: 20240825
  Transmission Date: 20241016
  Serious: Yes (Other)
  Sender: ABBVIE
  Company Number: US-ABBVIE-5884416

PATIENT
  Sex: Female
  Weight: 104 kg

DRUGS (1)
  1. CREON [Suspect]
     Active Substance: PANCRELIPASE AMYLASE\PANCRELIPASE LIPASE\PANCRELIPASE PROTEASE
     Indication: Pancreatic failure
     Dosage: FORM STRENGTH:36000 UNIT?FREQUENCY TEXT:7 CAPS PER MEAL AND 3 PER SNACK
     Route: 048
     Dates: start: 20240201

REACTIONS (5)
  - Carpal tunnel syndrome [Recovering/Resolving]
  - Pain in extremity [Not Recovered/Not Resolved]
  - Neuropathy peripheral [Recovering/Resolving]
  - Peripheral swelling [Not Recovered/Not Resolved]
  - Pruritus [Not Recovered/Not Resolved]

NARRATIVE: CASE EVENT DATE: 20240101
